FAERS Safety Report 7046538-2 (Version None)
Quarter: 2010Q4

REPORT INFORMATION
  Report Type: 
  Country: None (occurrence: None)
  Receive Date: 20101015
  Receipt Date: 20101011
  Transmission Date: 20110411
  Serious: Yes (Other)
  Sender: FDA-Public Use
  Company Number: CH-BIOGENIDEC-2010BI025357

PATIENT
  Age: 38 Year
  Sex: Female
  Weight: 100 kg

DRUGS (3)
  1. TYSABRI [Suspect]
     Indication: MULTIPLE SCLEROSIS
     Route: 042
     Dates: start: 20100625
  2. SOLU-MEDROL [Concomitant]
     Route: 042
  3. XYZAL [Concomitant]
     Route: 048

REACTIONS (6)
  - DRUG SPECIFIC ANTIBODY PRESENT [None]
  - ERYTHEMA [None]
  - FEELING HOT [None]
  - LIVER FUNCTION TEST ABNORMAL [None]
  - OEDEMA [None]
  - PAIN [None]
